FAERS Safety Report 9656043 (Version 1)
Quarter: 2013Q4

REPORT INFORMATION
  Report Type: Spontaneous
  Country: US (occurrence: US)
  Receive Date: 20131030
  Receipt Date: 20131030
  Transmission Date: 20140711
  Serious: Yes (Other)
  Sender: FDA-Public Use
  Company Number: US-JNJFOC-20131014847

PATIENT
  Sex: Female
  Weight: 96.62 kg

DRUGS (4)
  1. UNSPECIFIED FENTANYL [Suspect]
     Indication: PAIN
     Route: 062
  2. MORPHINE SULFATE [Concomitant]
     Indication: PAIN
     Dosage: AT BED TIME
     Route: 048
  3. MORPHINE SULFATE [Concomitant]
     Indication: PAIN
     Route: 048
  4. HYDROCODONE [Concomitant]
     Indication: PAIN
     Route: 048

REACTIONS (3)
  - Hallucination [Not Recovered/Not Resolved]
  - Incorrect drug administration rate [Not Recovered/Not Resolved]
  - Drug administration error [Not Recovered/Not Resolved]
